FAERS Safety Report 24776908 (Version 1)
Quarter: 2024Q4

REPORT INFORMATION
  Report Type: Spontaneous
  Country: US (occurrence: US)
  Receive Date: 20241226
  Receipt Date: 20241226
  Transmission Date: 20250115
  Serious: Yes (Other)
  Sender: LUPIN
  Company Number: US-LUPIN PHARMACEUTICALS INC.-2024-12308

PATIENT
  Age: 63 Year
  Sex: Male

DRUGS (4)
  1. HYDROCORTISONE [Suspect]
     Active Substance: HYDROCORTISONE
     Indication: Thyroxine free decreased
     Dosage: UNK
     Route: 065
  2. Carboplatin;Pembrolizumab;Pemetrexed [Concomitant]
     Indication: Lung adenocarcinoma
     Dosage: UNK
     Route: 065
  3. DESMOPRESSIN [Concomitant]
     Active Substance: DESMOPRESSIN
     Indication: Product used for unknown indication
     Dosage: UNK
     Route: 065
  4. LEVOTHYROXINE [Concomitant]
     Active Substance: LEVOTHYROXINE
     Indication: Thyroxine free decreased
     Dosage: UNK
     Route: 065

REACTIONS (3)
  - Unmasking of previously unidentified disease [Unknown]
  - Diabetes insipidus [Unknown]
  - Off label use [Unknown]
